FAERS Safety Report 8779423 (Version 4)
Quarter: 2014Q2

REPORT INFORMATION
  Report Type: Spontaneous
  Country: US (occurrence: US)
  Receive Date: 20120912
  Receipt Date: 20140508
  Transmission Date: 20141212
  Serious: Yes (Other)
  Sender: FDA-Public Use
  Company Number: US-US-EMD SERONO, INC.-7159767

PATIENT
  Age: 47 Year
  Sex: Female
  Weight: 74 kg

DRUGS (2)
  1. REBIF [Suspect]
     Indication: RELAPSING-REMITTING MULTIPLE SCLEROSIS
     Route: 058
     Dates: start: 20060615
  2. VITAMIN D [Concomitant]
     Indication: PRODUCT USED FOR UNKNOWN INDICATION

REACTIONS (13)
  - Autoimmune thyroiditis [Not Recovered/Not Resolved]
  - Weight decreased [Unknown]
  - Muscle spasms [Not Recovered/Not Resolved]
  - Hypoaesthesia oral [Unknown]
  - Hypoaesthesia oral [Unknown]
  - Hypoaesthesia [Unknown]
  - Paraesthesia oral [Unknown]
  - Paraesthesia oral [Unknown]
  - Paraesthesia [Unknown]
  - Depression [Not Recovered/Not Resolved]
  - Chills [Unknown]
  - Rash [Unknown]
  - Injection site haemorrhage [Not Recovered/Not Resolved]
